FAERS Safety Report 7711259 (Version 5)
Quarter: 2012Q4

REPORT INFORMATION
  Report Type: 
  Country: US (occurrence: US)
  Receive Date: 20101215
  Receipt Date: 20121017
  Transmission Date: 20130627
  Serious: Yes (Death, Hospitalization)
  Sender: FDA-Public Use
  Company Number: US-BIOGENIDEC-2010BI042797

PATIENT
  Age: 52 Year
  Sex: Female

DRUGS (1)
  1. TYSABRI [Suspect]
     Indication: MULTIPLE SCLEROSIS
     Route: 042
     Dates: start: 20080627, end: 20101008

REACTIONS (9)
  - Urinary tract infection [Fatal]
  - Urosepsis [Not Recovered/Not Resolved]
  - Clostridium difficile infection [Not Recovered/Not Resolved]
  - Dementia [Not Recovered/Not Resolved]
  - Renal failure [Unknown]
  - Weight increased [Unknown]
  - Incontinence [Unknown]
  - Abasia [Unknown]
  - Mobility decreased [Unknown]
